FAERS Safety Report 8453993-X (Version None)
Quarter: 2012Q2

REPORT INFORMATION
  Report Type: 
  Country: None (occurrence: None)
  Receive Date: 20120620
  Receipt Date: 20120614
  Transmission Date: 20120825
  Serious: Yes (Death, Hospitalization, Other)
  Sender: FDA-Public Use
  Company Number: JP-ELI_LILLY_AND_COMPANY-JP201204003615

PATIENT
  Sex: Female
  Weight: 56.8 kg

DRUGS (10)
  1. GEMZAR [Suspect]
     Indication: OVARIAN CANCER RECURRENT
     Dosage: 1200 MG/M2, OTHER
     Route: 042
     Dates: start: 20111013, end: 20120322
  2. CARNACULIN [Concomitant]
     Dosage: 25 IU, TID
     Route: 048
     Dates: start: 20120324
  3. GOSHAJINKIGAN [Concomitant]
     Dosage: 2.5 G, TID
     Route: 048
     Dates: start: 20120324
  4. LOXONIN [Concomitant]
     Dosage: 60 MG, TID
     Route: 048
     Dates: start: 20120324
  5. ALLEGRA [Concomitant]
     Dosage: 60 MG, BID
     Route: 048
     Dates: start: 20120324
  6. AMLODIPINE [Concomitant]
     Dosage: 5 MG, QD
     Route: 048
     Dates: start: 20120324
  7. VITAMIN B12 [Concomitant]
     Dosage: 500 UG, TID
     Route: 048
     Dates: start: 20120324
  8. LASIX [Concomitant]
     Dosage: 20 MG, QD
     Route: 048
     Dates: start: 20120324
  9. TAGAMET [Concomitant]
     Dosage: 200 MG, BID
     Route: 048
     Dates: start: 20120324
  10. MUCODYNE [Concomitant]
     Dosage: 250 MG, TID
     Route: 048
     Dates: start: 20120324

REACTIONS (3)
  - INTERSTITIAL LUNG DISEASE [None]
  - PNEUMONIA [None]
  - RENAL IMPAIRMENT [None]
